FAERS Safety Report 21468522 (Version 2)
Quarter: 2023Q1

REPORT INFORMATION
  Report Type: Report from Study
  Country: GB (occurrence: GB)
  Receive Date: 20221017
  Receipt Date: 20230102
  Transmission Date: 20230417
  Serious: Yes (Hospitalization)
  Sender: FDA-Public Use
  Company Number: GB-ABBVIE-4157249

PATIENT
  Age: 68 Year
  Sex: Male

DRUGS (2)
  1. CARBIDOPA\LEVODOPA [Suspect]
     Active Substance: CARBIDOPA\LEVODOPA
     Indication: Parkinson^s disease
     Dosage: 20MGS/5MGS/ FREQUENCY TEXT: 2 AT NIGHT
     Route: 050
  2. CARBIDOPA\LEVODOPA [Suspect]
     Active Substance: CARBIDOPA\LEVODOPA

REACTIONS (8)
  - Cholecystitis [Unknown]
  - Overdose [Not Recovered/Not Resolved]
  - Stoma site pain [Not Recovered/Not Resolved]
  - Oral candidiasis [Not Recovered/Not Resolved]
  - Cholecystitis infective [Not Recovered/Not Resolved]
  - Feeding disorder [Recovered/Resolved]
  - Confusional state [Not Recovered/Not Resolved]
  - Weight decreased [Not Recovered/Not Resolved]

NARRATIVE: CASE EVENT DATE: 20220101
